FAERS Safety Report 5413410-0 (Version None)
Quarter: 2007Q3

REPORT INFORMATION
  Report Type: 
  Country: None (occurrence: None)
  Receive Date: 20070810
  Receipt Date: 20070727
  Transmission Date: 20080115
  Serious: Yes (Life-Threatening, Hospitalization)
  Sender: FDA-Public Use
  Company Number: 2007EU001682

PATIENT
  Age: 18 Year
  Sex: Male

DRUGS (3)
  1. VESICARE [Suspect]
     Dosage: 5 MG, /D,ORAL
     Route: 047
     Dates: start: 20070701, end: 20070701
  2. EPILIM (VALPROATE SODIUM) [Concomitant]
  3. LAMOTRIGINE [Concomitant]

REACTIONS (4)
  - ASTHENIA [None]
  - COORDINATION ABNORMAL [None]
  - EPILEPSY [None]
  - MUSCULAR WEAKNESS [None]
